FAERS Safety Report 20408072 (Version 1)
Quarter: 2022Q1

REPORT INFORMATION
  Report Type: Spontaneous
  Country: PL (occurrence: PL)
  Receive Date: 20220201
  Receipt Date: 20220201
  Transmission Date: 20220424
  Serious: Yes (Hospitalization)
  Sender: FDA-Public Use
  Company Number: PL-TEVA-2022-PL-2003499

PATIENT
  Age: 29 Year
  Sex: Female

DRUGS (1)
  1. ONDANSETRON [Interacting]
     Active Substance: ONDANSETRON
     Indication: Nausea
     Route: 065

REACTIONS (12)
  - Drug interaction [Unknown]
  - Chills [Recovering/Resolving]
  - Hyperhidrosis [Recovering/Resolving]
  - Body temperature increased [Recovering/Resolving]
  - Myalgia [Recovering/Resolving]
  - Headache [Recovering/Resolving]
  - Muscle spasms [Recovering/Resolving]
  - Micturition frequency decreased [Recovering/Resolving]
  - Serotonin syndrome [Recovering/Resolving]
  - Myopathy [Recovering/Resolving]
  - Myoglobinuria [Recovering/Resolving]
  - Renal failure [Recovering/Resolving]
